FAERS Safety Report 13598761 (Version 1)
Quarter: 2017Q2

REPORT INFORMATION
  Report Type: Spontaneous
  Country: IT (occurrence: IT)
  Receive Date: 20170531
  Receipt Date: 20170531
  Transmission Date: 20170830
  Serious: Yes (Hospitalization)
  Sender: FDA-Public Use
  Company Number: IT-PFIZER INC-2017232697

PATIENT
  Age: 47 Year
  Sex: Female

DRUGS (2)
  1. SOMAVERT [Suspect]
     Active Substance: PEGVISOMANT
     Indication: ACROMEGALY
     Dosage: 60 MG, TOTAL
     Route: 058
     Dates: start: 20170130, end: 20170422
  2. TOLEP [Concomitant]
     Active Substance: OXCARBAZEPINE
     Dosage: 450 MG, UNK
     Route: 048
     Dates: start: 20170330, end: 20170428

REACTIONS (2)
  - Hyperbilirubinaemia [Recovering/Resolving]
  - Hypertransaminasaemia [Recovering/Resolving]

NARRATIVE: CASE EVENT DATE: 20170410
